FAERS Safety Report 9695083 (Version 1)
Quarter: 2013Q4

REPORT INFORMATION
  Report Type: Report from Study
  Country: AU (occurrence: AU)
  Receive Date: 20131119
  Receipt Date: 20131119
  Transmission Date: 20140711
  Serious: Yes (Hospitalization)
  Sender: FDA-Public Use
  Company Number: PHHY2013AU130532

PATIENT
  Sex: Female

DRUGS (3)
  1. CLOZARIL [Suspect]
     Dosage: 50 MG
     Dates: start: 20040105, end: 20131104
  2. CLOZARIL [Suspect]
     Dosage: UNK
     Dates: start: 20131112
  3. CLOZARIL [Suspect]
     Dosage: UNK

REACTIONS (1)
  - Malaise [Unknown]
